FAERS Safety Report 21016133 (Version 1)
Quarter: 2022Q2

REPORT INFORMATION
  Report Type: Other
  Country: US (occurrence: US)
  Receive Date: 20220628
  Receipt Date: 20220628
  Transmission Date: 20220721
  Serious: Yes (Hospitalization)
  Sender: FDA-Public Use
  Company Number: US-HLS-202200617

PATIENT
  Age: 23 Year
  Sex: Male

DRUGS (2)
  1. CLOZAPINE [Suspect]
     Active Substance: CLOZAPINE
     Indication: Bipolar I disorder
     Route: 048
  2. CLOZAPINE [Suspect]
     Active Substance: CLOZAPINE
     Indication: Bipolar I disorder
     Dosage: AT BEDTIME
     Route: 048

REACTIONS (9)
  - Fall [Unknown]
  - Irritability [Recovering/Resolving]
  - Treatment noncompliance [Unknown]
  - Oxygen saturation decreased [Recovering/Resolving]
  - Paranoia [Recovering/Resolving]
  - Somnolence [Recovering/Resolving]
  - Pressure of speech [Recovering/Resolving]
  - Salivary hypersecretion [Unknown]
  - Poor quality sleep [Recovering/Resolving]
